FAERS Safety Report 21695484 (Version 1)
Quarter: 2022Q4

REPORT INFORMATION
  Report Type: Spontaneous
  Country: US (occurrence: US)
  Receive Date: 20221207
  Receipt Date: 20221207
  Transmission Date: 20230112
  Serious: No
  Sender: FDA-Public Use
  Company Number: US-BRISTOL-MYERS SQUIBB COMPANY-2022-149134

PATIENT
  Age: 71 Year
  Sex: Female
  Weight: 90.26 kg

DRUGS (1)
  1. POMALYST [Suspect]
     Active Substance: POMALIDOMIDE
     Indication: Plasma cell myeloma
     Dosage: FREQ; 3W, 1W OFF
     Route: 048
     Dates: start: 20220908

REACTIONS (2)
  - Constipation [Unknown]
  - Dizziness [Unknown]
